FAERS Safety Report 14630124 (Version 1)
Quarter: 2018Q1

REPORT INFORMATION
  Report Type: Spontaneous
  Country: US (occurrence: US)
  Receive Date: 20180313
  Receipt Date: 20180313
  Transmission Date: 20180509
  Serious: Yes (Other)
  Sender: FDA-Public Use
  Company Number: US-IDTAUSTRALIA-2018-US-003231

PATIENT
  Sex: Male

DRUGS (1)
  1. FLUCONAZOLE (NON-SPECIFIC) [Suspect]
     Active Substance: FLUCONAZOLE
     Dosage: 400 MG DAILY
     Route: 048
     Dates: start: 1991

REACTIONS (2)
  - Paralysis [Unknown]
  - Hypokalaemia [Unknown]
